FAERS Safety Report 20300133 (Version 1)
Quarter: 2022Q1

REPORT INFORMATION
  Report Type: Spontaneous
  Country: SK (occurrence: SK)
  Receive Date: 20220105
  Receipt Date: 20220105
  Transmission Date: 20220423
  Serious: Yes (Other)
  Sender: FDA-Public Use
  Company Number: SK-EMA-DD-20211215-bhushan_a-152013

PATIENT
  Sex: Female
  Weight: 65 kg

DRUGS (12)
  1. CLOPIDOGREL [Suspect]
     Active Substance: CLOPIDOGREL BISULFATE
     Dosage: UNK
     Route: 048
  2. ATORVASTATIN CALCIUM\EZETIMIBE [Concomitant]
     Active Substance: ATORVASTATIN CALCIUM\EZETIMIBE
     Indication: Dyslipidaemia
     Dosage: 10/40 MG PER DAY
     Route: 048
     Dates: start: 20181122
  3. HYDROCHLOROTHIAZIDE\TELMISARTAN [Concomitant]
     Active Substance: HYDROCHLOROTHIAZIDE\TELMISARTAN
     Indication: Hypertension
     Dosage: 80/12.5 MG PER DAY
     Route: 048
     Dates: start: 20140626
  4. ALLOPURINOL [Concomitant]
     Active Substance: ALLOPURINOL
     Indication: Hyperuricaemia
     Dosage: 300 MILLIGRAM DAILY;
     Route: 048
     Dates: start: 20100715
  5. Coronal [Concomitant]
     Indication: Myocardial ischaemia
     Dosage: 5 MILLIGRAM DAILY;
     Route: 048
     Dates: start: 20000715
  6. ASPIRIN [Concomitant]
     Active Substance: ASPIRIN
     Indication: Myocardial ischaemia
     Dosage: 100 MILLIGRAM DAILY;
     Route: 048
     Dates: start: 19930113
  7. METFORMIN HYDROCHLORIDE [Concomitant]
     Active Substance: METFORMIN HYDROCHLORIDE
     Indication: Diabetes mellitus
     Dosage: 2000 MILLIGRAM DAILY; 1000 MG, 2X PER DAY
     Route: 048
     Dates: start: 20100715
  8. Enelbin [Concomitant]
     Indication: Myocardial ischaemia
     Dosage: 400 MILLIGRAM DAILY; 100 MG, 4X PER DAY; ENELBIN RETARD
     Route: 048
     Dates: start: 20140626
  9. PANTOPRAZOLE SODIUM [Concomitant]
     Active Substance: PANTOPRAZOLE SODIUM
     Indication: Dyspepsia
     Dosage: 20 MILLIGRAM DAILY;
     Route: 048
     Dates: start: 20161215
  10. GLICLAZIDE [Concomitant]
     Active Substance: GLICLAZIDE
     Indication: Diabetes mellitus
     Dosage: 120 MILLIGRAM DAILY; 60 MG, 2X PER DAY
     Route: 048
     Dates: start: 20181122
  11. Amlopin [Concomitant]
     Indication: Hypertension
     Dosage: 5 MILLIGRAM DAILY;
     Route: 048
     Dates: start: 20170914
  12. CLOPIDOGREL BISULFATE [Concomitant]
     Active Substance: CLOPIDOGREL BISULFATE
     Indication: Myocardial ischaemia
     Dosage: 75 MILLIGRAM DAILY;
     Route: 048
     Dates: start: 20161215

REACTIONS (2)
  - Angina pectoris [Recovered/Resolved]
  - Drug intolerance [Unknown]

NARRATIVE: CASE EVENT DATE: 20100715
